FAERS Safety Report 15020561 (Version 1)
Quarter: 2018Q2

REPORT INFORMATION
  Report Type: Report from Study
  Country: IT (occurrence: IT)
  Receive Date: 20180618
  Receipt Date: 20180618
  Transmission Date: 20180711
  Serious: Yes (Other)
  Sender: FDA-Public Use
  Company Number: IT-TEVA-2018-IT-904273

PATIENT
  Age: 74 Year
  Sex: Female

DRUGS (5)
  1. PHENOBARBITAL. [Suspect]
     Active Substance: PHENOBARBITAL
     Route: 065
  2. VERAPAMIL [Interacting]
     Active Substance: VERAPAMIL HYDROCHLORIDE
     Route: 065
  3. INFLUENZA VIRUS VACCINE TRIVALENT [Interacting]
     Active Substance: INFLUENZA VIRUS VACCINE TRIVALENT TYPE A+B
     Indication: IMMUNISATION
     Route: 065
  4. PHENYTOIN. [Interacting]
     Active Substance: PHENYTOIN
     Route: 065
  5. CARBAMAZEPINE. [Suspect]
     Active Substance: CARBAMAZEPINE
     Route: 065

REACTIONS (6)
  - Toxicity to various agents [Recovered/Resolved]
  - Coma [Recovered/Resolved]
  - Pyrexia [Recovered/Resolved]
  - Drug interaction [Recovered/Resolved]
  - Tachycardia [Recovered/Resolved]
  - Myocardial infarction [Recovered/Resolved]
